FAERS Safety Report 7088576-X (Version None)
Quarter: 2010Q4

REPORT INFORMATION
  Report Type: 
  Country: None (occurrence: None)
  Receive Date: 20101108
  Receipt Date: 20101102
  Transmission Date: 20110411
  Serious: Yes (Death, Hospitalization)
  Sender: FDA-Public Use
  Company Number: US-US-EMD SERONO, INC.-233396J09USA

PATIENT
  Sex: Female

DRUGS (12)
  1. REBIF [Suspect]
     Indication: MULTIPLE SCLEROSIS
     Route: 058
     Dates: start: 20091116
  2. REBIF [Suspect]
     Route: 058
  3. REMERON [Suspect]
     Indication: PRODUCT USED FOR UNKNOWN INDICATION
     Dates: start: 20091120
  4. ANTI-ANXIETY MEDICATION [Concomitant]
     Indication: ANXIETY
     Dates: start: 20030101
  5. EFFEXOR [Concomitant]
     Indication: DEPRESSION
     Dates: start: 20030101
  6. COUMADIN [Concomitant]
  7. GEODON [Concomitant]
  8. TRAZODONE [Concomitant]
  9. XANAX [Concomitant]
  10. SOMA [Concomitant]
  11. VICODIN [Concomitant]
  12. PSYCHIATRIC MEDICATIONS [Concomitant]
     Indication: MENTAL DISORDER

REACTIONS (4)
  - EAR INFECTION [None]
  - OROPHARYNGEAL PAIN [None]
  - OVERDOSE [None]
  - SUICIDAL IDEATION [None]
